FAERS Safety Report 19868869 (Version 2)
Quarter: 2021Q3

REPORT INFORMATION
  Report Type: Spontaneous
  Country: DE (occurrence: DE)
  Receive Date: 20210922
  Receipt Date: 20210930
  Transmission Date: 20211014
  Serious: Yes (Death, Other)
  Sender: FDA-Public Use
  Company Number: DE-PFIZER INC-202101222569

PATIENT
  Age: 53 Year
  Sex: Male
  Weight: 95 kg

DRUGS (2)
  1. COMIRNATY [Suspect]
     Active Substance: TOZINAMERAN
     Indication: COVID-19 IMMUNISATION
     Dosage: DOSE 2,  SINGLE
     Dates: start: 20210731, end: 20210731
  2. VIAGRA [Suspect]
     Active Substance: SILDENAFIL CITRATE
     Dosage: UNK
     Dates: start: 20210824

REACTIONS (7)
  - Brain death [Fatal]
  - Renal infarct [Unknown]
  - Arteriosclerosis [Unknown]
  - Inappropriate schedule of product administration [Unknown]
  - Pulmonary embolism [Unknown]
  - Myocardial infarction [Fatal]
  - Deep vein thrombosis [Unknown]

NARRATIVE: CASE EVENT DATE: 20210731
